FAERS Safety Report 22955828 (Version 7)
Quarter: 2024Q2

REPORT INFORMATION
  Report Type: Spontaneous
  Country: US (occurrence: US)
  Receive Date: 20230919
  Receipt Date: 20240620
  Transmission Date: 20240716
  Serious: Yes (Other)
  Sender: FDA-Public Use
  Company Number: US-BRISTOL-MYERS SQUIBB COMPANY-2023-131673

PATIENT
  Age: 71 Year
  Sex: Female

DRUGS (5)
  1. THALOMID [Suspect]
     Active Substance: THALIDOMIDE
     Indication: Plasma cell myeloma
     Route: 048
  2. THALOMID [Suspect]
     Active Substance: THALIDOMIDE
     Route: 048
  3. THALOMID [Suspect]
     Active Substance: THALIDOMIDE
     Dosage: QD
     Route: 048
  4. THALOMID [Suspect]
     Active Substance: THALIDOMIDE
     Dosage: DAILY FOR 21 DAYS ON THEN 7 DAYS OFF.
     Route: 048
  5. VELCADE [Concomitant]
     Active Substance: BORTEZOMIB

REACTIONS (4)
  - Neuropathy peripheral [Not Recovered/Not Resolved]
  - Muscle spasms [Unknown]
  - Asthenia [Unknown]
  - Off label use [Unknown]
